FAERS Safety Report 4387815-3 (Version None)
Quarter: 2004Q2

REPORT INFORMATION
  Report Type: 
  Country: None (occurrence: None)
  Receive Date: 20040630
  Receipt Date: 20040421
  Transmission Date: 20050107
  Serious: Yes (Other)
  Sender: FDA-Public Use
  Company Number: PHBS2004JP05498

PATIENT
  Age: 73 Year
  Sex: Female

DRUGS (4)
  1. CYCLOSPORINE [Suspect]
     Indication: PARANEOPLASTIC SYNDROME
     Dosage: 80 MG/D
     Route: 048
     Dates: start: 20030701, end: 20030801
  2. CYCLOSPORINE [Suspect]
     Dosage: 200 MG/D
     Route: 048
     Dates: start: 20030801, end: 20030801
  3. CYCLOSPORINE [Suspect]
     Route: 048
     Dates: start: 20030801, end: 20030901
  4. PREDNISOLONE [Concomitant]
     Indication: PARANEOPLASTIC SYNDROME
     Route: 065

REACTIONS (1)
  - PNEUMOCYSTIS CARINII PNEUMONIA [None]
